FAERS Safety Report 8059647 (Version 2)
Quarter: 2020Q3

REPORT INFORMATION
  Report Type: Spontaneous
  Country: NL (occurrence: NL)
  Receive Date: 20110728
  Receipt Date: 20200722
  Transmission Date: 20201103
  Serious: Yes (Life-Threatening, Hospitalization)
  Sender: FDA-Public Use
  Company Number: PHHY2011NL67272

PATIENT
  Age: 58 Year
  Sex: Male

DRUGS (1)
  1. METFORMIN [Suspect]
     Active Substance: METFORMIN HYDROCHLORIDE
     Indication: TYPE 2 DIABETES MELLITUS
     Dosage: 850?2550 MG QD
     Route: 065

REACTIONS (6)
  - Metabolic acidosis [Unknown]
  - Lactic acidosis [Unknown]
  - Renal failure [Unknown]
  - Acute kidney injury [Unknown]
  - Toxicity to various agents [Unknown]
  - Dehydration [Unknown]
